FAERS Safety Report 4451304-8 (Version None)
Quarter: 2004Q3

REPORT INFORMATION
  Report Type: 
  Country: None (occurrence: None)
  Receive Date: 20040913
  Receipt Date: 20040629
  Transmission Date: 20050211
  Serious: No
  Sender: FDA-Public Use
  Company Number: 2004-BP-05385BP

PATIENT
  Age: 77 Year
  Sex: Male

DRUGS (9)
  1. SPIRIVA [Suspect]
     Dosage: (18 MCG), IH
     Route: 055
     Dates: end: 20040616
  2. SIMVASTATIN [Concomitant]
  3. HYDROCHLOROTHIAZIDE [Concomitant]
  4. FOSINOPRIL SODIUM [Concomitant]
  5. ATENOLOL [Concomitant]
  6. VIOXX [Concomitant]
  7. AVANDIA [Concomitant]
  8. QUININE SULFATE (QUININE SULFATE) [Concomitant]
  9. MUCINEX (GUAIFENESIN) [Concomitant]

REACTIONS (1)
  - BLOOD GLUCOSE INCREASED [None]
